FAERS Safety Report 8237571-3 (Version None)
Quarter: 2012Q1

REPORT INFORMATION
  Report Type: 
  Country: None (occurrence: None)
  Receive Date: 20120323
  Receipt Date: 20120316
  Transmission Date: 20120608
  Serious: Yes (Hospitalization)
  Sender: FDA-Public Use
  Company Number: 2012-001045

PATIENT
  Age: 95 Year
  Sex: Male

DRUGS (1)
  1. ENABLEX [Suspect]
     Dosage: 15 MG, ORAL
     Route: 048

REACTIONS (5)
  - GAIT DISTURBANCE [None]
  - MYALGIA [None]
  - CEREBROVASCULAR ACCIDENT [None]
  - PAIN [None]
  - ARTHRALGIA [None]
